FAERS Safety Report 9140933 (Version 1)
Quarter: 2013Q1

REPORT INFORMATION
  Report Type: Spontaneous
  Country: US (occurrence: US)
  Receive Date: 20130305
  Receipt Date: 20130305
  Transmission Date: 20140127
  Serious: No
  Sender: FDA-Public Use
  Company Number: US-ASTRAZENECA-2013SE07511

PATIENT
  Age: 49 Year
  Sex: Female

DRUGS (2)
  1. SYMBICORT [Suspect]
     Indication: ASTHMA
     Route: 055
     Dates: start: 201301
  2. ZITHROMAX [Suspect]
     Route: 065

REACTIONS (2)
  - Eosinophil count increased [Unknown]
  - Rash [Unknown]
